FAERS Safety Report 8126143-7 (Version None)
Quarter: 2012Q1

REPORT INFORMATION
  Report Type: 
  Country: None (occurrence: None)
  Receive Date: 20120209
  Receipt Date: 20120203
  Transmission Date: 20120608
  Serious: Yes (Disabling)
  Sender: FDA-Public Use
  Company Number: PHHY2010CA54434

PATIENT
  Sex: Female

DRUGS (15)
  1. CLONAZEPAM [Concomitant]
  2. FOLIC ACID [Concomitant]
     Dosage: 5 UKN, QD
  3. SINGULAIR [Concomitant]
     Dosage: 10 MG, QD
  4. VITAMIN D [Concomitant]
     Dosage: 1200 IU, UNK
     Dates: start: 19990101
  5. CALCIUM [Concomitant]
     Dosage: 800 IU, UNK
     Dates: start: 19990101
  6. ASACOL [Concomitant]
     Dosage: UNK UKN, UNK
  7. TRAMADOL HCL [Concomitant]
     Dosage: 100 UKN, QD
  8. ACTONEL [Concomitant]
  9. FENOFIBRATE [Concomitant]
  10. QUININE [Concomitant]
  11. ZOLEDRONOC ACID [Suspect]
     Indication: OSTEOPOROSIS
     Dosage: 5 MG, UNK
     Route: 042
     Dates: start: 20091115
  12. LOPERAMIDE HCL [Concomitant]
     Dosage: 2 UKN, BID
  13. FORTEO [Concomitant]
     Dosage: 20 MG, QD
     Dates: start: 20100827
  14. LEVOTHYROXINE SODIUM [Concomitant]
     Dosage: 100 UKN, QD
  15. RABEPRAZOLE SODIUM [Concomitant]
     Dosage: 40 UKN, QD

REACTIONS (7)
  - SPINAL COMPRESSION FRACTURE [None]
  - FALL [None]
  - DRUG INEFFECTIVE [None]
  - PAIN [None]
  - BACK PAIN [None]
  - THORACIC VERTEBRAL FRACTURE [None]
  - BODY HEIGHT DECREASED [None]
